FAERS Safety Report 26097652 (Version 1)
Quarter: 2025Q4

REPORT INFORMATION
  Report Type: Report from Study
  Country: US (occurrence: US)
  Receive Date: 20251127
  Receipt Date: 20251127
  Transmission Date: 20260118
  Serious: Yes (Other)
  Sender: MALLINCKRODT
  Company Number: US-MALLINCKRODT-MNK202507285

PATIENT
  Sex: Male

DRUGS (1)
  1. CORTICOTROPIN [Suspect]
     Active Substance: CORTICOTROPIN
     Indication: Polymyalgia rheumatica
     Dosage: 40 UNITS
     Dates: start: 20241120

REACTIONS (2)
  - Hypertension [Not Recovered/Not Resolved]
  - Pain [Unknown]
